FAERS Safety Report 13957635 (Version 1)
Quarter: 2017Q3

REPORT INFORMATION
  Report Type: Report from Study
  Country: US (occurrence: US)
  Receive Date: 20170912
  Receipt Date: 20170912
  Transmission Date: 20171128
  Serious: Yes (Hospitalization)
  Sender: FDA-Public Use
  Company Number: PHHY2017US133834

PATIENT
  Sex: Male

DRUGS (8)
  1. CLOZARIL [Suspect]
     Active Substance: CLOZAPINE
     Route: 065
  2. MIRTAZAPINE. [Concomitant]
     Active Substance: MIRTAZAPINE
     Indication: PRODUCT USED FOR UNKNOWN INDICATION
     Route: 065
  3. CLOZARIL [Suspect]
     Active Substance: CLOZAPINE
     Indication: PRODUCT USED FOR UNKNOWN INDICATION
     Route: 065
  4. LORAZEPAM. [Concomitant]
     Active Substance: LORAZEPAM
     Indication: PRODUCT USED FOR UNKNOWN INDICATION
     Route: 065
  5. LAMOTRIGINE. [Concomitant]
     Active Substance: LAMOTRIGINE
     Indication: PRODUCT USED FOR UNKNOWN INDICATION
     Route: 065
  6. DULOXETINE. [Concomitant]
     Active Substance: DULOXETINE
     Indication: PRODUCT USED FOR UNKNOWN INDICATION
     Route: 065
  7. CILOSTAZOL. [Suspect]
     Active Substance: CILOSTAZOL
     Indication: PRODUCT USED FOR UNKNOWN INDICATION
     Dosage: 200 MG, QD (HS)
     Route: 065
  8. GALANTAMINE. [Concomitant]
     Active Substance: GALANTAMINE
     Indication: PRODUCT USED FOR UNKNOWN INDICATION
     Route: 065

REACTIONS (3)
  - Psychotic disorder [Unknown]
  - Wrong drug administered [Recovered/Resolved]
  - Drug dispensing error [Recovered/Resolved]
